FAERS Safety Report 19007119 (Version 1)
Quarter: 2021Q1

REPORT INFORMATION
  Report Type: Spontaneous
  Country: US (occurrence: US)
  Receive Date: 20210312
  Receipt Date: 20210312
  Transmission Date: 20210420
  Serious: Yes (Hospitalization)
  Sender: FDA-Public Use
  Company Number: None

PATIENT
  Age: 73 Year
  Sex: Male

DRUGS (1)
  1. GLIPIZIDE (GLIPIZIDE 5MG TAB) [Suspect]
     Active Substance: GLIPIZIDE
     Indication: DIABETES MELLITUS
     Dates: start: 20201020, end: 20201208

REACTIONS (4)
  - Fatigue [None]
  - Dyspnoea [None]
  - Dialysis [None]
  - Hypoglycaemia [None]

NARRATIVE: CASE EVENT DATE: 20210116
